FAERS Safety Report 6902525-3 (Version None)
Quarter: 2010Q3

REPORT INFORMATION
  Report Type: 
  Country: None (occurrence: None)
  Receive Date: 20100730
  Receipt Date: 20100715
  Transmission Date: 20110219
  Serious: Yes (Life-Threatening, Hospitalization)
  Sender: FDA-Public Use
  Company Number: 1000015277

PATIENT
  Age: 94 Year
  Sex: Male

DRUGS (10)
  1. CITALOPRAM (CITALOPRAM HYDROBROMIDE) (TABLETS) [Suspect]
     Indication: DEPRESSION
     Dosage: 20 MG (20 MG, 1 IN 1 D),ORAL
     Route: 048
  2. PREVISCAN (TABLETS) [Suspect]
     Indication: TRANSIENT ISCHAEMIC ATTACK
     Dosage: 10 MG (10 MG, 1 IN 1 D),ORAL
     Route: 048
     Dates: end: 20100104
  3. CORDARONE [Suspect]
     Indication: ATRIAL FIBRILLATION
     Dosage: 0.5 DOSAGE FORMS (0.5 DOSAGE FORMS, 1 IN 1 D), ORAL
     Route: 048
     Dates: end: 20100104
  4. PERINDOPRIL ERBUMINE [Concomitant]
  5. TRINIPATCH (POULTICE OR PATCH) [Concomitant]
  6. DOLIPRANE [Concomitant]
  7. FORLAX [Concomitant]
  8. LYRICA [Concomitant]
  9. XALATAN [Suspect]
  10. SERETIDE DISCUS [Concomitant]

REACTIONS (3)
  - DRUG INTERACTION [None]
  - MUSCLE HAEMORRHAGE [None]
  - PSOAS SIGN [None]
